FAERS Safety Report 4437297-8 (Version None)
Quarter: 2004Q3

REPORT INFORMATION
  Report Type: 
  Country: None (occurrence: None)
  Receive Date: 20040827
  Receipt Date: 20040818
  Transmission Date: 20050211
  Serious: Yes (Death, Hospitalization, Other)
  Sender: FDA-Public Use
  Company Number: US-SHR-04-024469

PATIENT
  Age: 56 Year
  Sex: Female

DRUGS (1)
  1. CAMPATH [Suspect]
     Indication: MYCOSIS FUNGOIDES STAGE IV
     Dosage: 15 MG, INTRAVENOUS
     Route: 042

REACTIONS (5)
  - CAPILLARY LEAK SYNDROME [None]
  - COMA [None]
  - DRUG TOXICITY [None]
  - HYPOTENSION [None]
  - MULTI-ORGAN FAILURE [None]
